FAERS Safety Report 5427060-3 (Version None)
Quarter: 2007Q3

REPORT INFORMATION
  Report Type: 
  Country: None (occurrence: None)
  Receive Date: 20070824
  Receipt Date: 20070824
  Transmission Date: 20080115
  Serious: Yes (Hospitalization)
  Sender: FDA-Public Use
  Company Number: None

PATIENT
  Age: 55 Year
  Sex: Female
  Weight: 60.3 kg

DRUGS (12)
  1. MYCOPHENOLATE MOFETIL [Suspect]
     Indication: IMMUNOSUPPRESSION
     Dosage: 500 MG Q12H PO
     Route: 048
     Dates: start: 20070502, end: 20070517
  2. SIMVASTATIN [Concomitant]
  3. LANSOPRAZOLE [Concomitant]
  4. FLUOXETINE [Concomitant]
  5. LEVOTHYROXINE SODIUM [Concomitant]
  6. DOCUSATE [Concomitant]
  7. M.V.I. [Concomitant]
  8. NYSTATIN [Concomitant]
  9. BACTRIM [Concomitant]
  10. VALGANCICLOVIR HCL [Concomitant]
  11. PREDNISONE [Concomitant]
  12. TACROLIMUS [Concomitant]

REACTIONS (3)
  - DIARRHOEA [None]
  - NAUSEA [None]
  - VOMITING [None]
